FAERS Safety Report 13558758 (Version 1)
Quarter: 2017Q2

REPORT INFORMATION
  Report Type: Spontaneous
  Country: RU (occurrence: RU)
  Receive Date: 20170518
  Receipt Date: 20170518
  Transmission Date: 20170830
  Serious: Yes (Hospitalization)
  Sender: FDA-Public Use
  Company Number: RU-JNJFOC-20170514951

PATIENT
  Age: 44 Year
  Sex: Female

DRUGS (4)
  1. XARELTO [Suspect]
     Active Substance: RIVAROXABAN
     Indication: DEEP VEIN THROMBOSIS
     Route: 048
  2. XARELTO [Suspect]
     Active Substance: RIVAROXABAN
     Indication: PELVIC VENOUS THROMBOSIS
     Route: 048
  3. FRAXIPARINE [Suspect]
     Active Substance: NADROPARIN CALCIUM
     Indication: DEEP VEIN THROMBOSIS
     Route: 058
  4. FRAXIPARINE [Suspect]
     Active Substance: NADROPARIN CALCIUM
     Indication: PELVIC VENOUS THROMBOSIS
     Route: 058

REACTIONS (3)
  - Iliac vein occlusion [Recovered/Resolved]
  - Peripheral vascular disorder [Recovered/Resolved]
  - Drug ineffective [Unknown]
